FAERS Safety Report 8277035 (Version 2)
Quarter: 2014Q2

REPORT INFORMATION
  Report Type: Report from Study
  Country: JP (occurrence: JP)
  Receive Date: 20111206
  Receipt Date: 20140417
  Transmission Date: 20141212
  Serious: Yes (Death, Hospitalization)
  Sender: FDA-Public Use
  Company Number: PHHO2010JP10665

PATIENT
  Age: 68 Year
  Sex: Female
  Weight: 38 kg

DRUGS (13)
  1. AFINITOR [Suspect]
     Indication: METASTATIC GASTRIC CANCER
     Dosage: 10 MG, QD
     Route: 048
     Dates: start: 20100629, end: 20100713
  2. DIOVAN [Concomitant]
     Indication: HYPERTENSION
  3. PURSENNID [Concomitant]
     Indication: CONSTIPATION
     Dosage: UNK
     Dates: start: 20090723
  4. OXYCONTIN [Concomitant]
     Indication: CANCER PAIN
  5. OXINORM [Concomitant]
     Indication: CANCER PAIN
  6. CELECOXIB [Concomitant]
     Indication: CANCER PAIN
  7. SERENACE [Concomitant]
     Indication: NAUSEA
  8. GASMOTIN [Concomitant]
     Indication: DECREASED APPETITE
  9. MAGLAX [Concomitant]
     Indication: CONSTIPATION
  10. LECICARBON [Concomitant]
     Indication: CONSTIPATION
     Dosage: UNK
     Dates: start: 20090725
  11. NOVAMIN [Concomitant]
     Indication: NAUSEA
  12. FAMOTIDINE [Concomitant]
     Indication: PROPHYLAXIS AGAINST GASTROINTESTINAL ULCER
  13. METHYCOBAL [Concomitant]

REACTIONS (13)
  - Sudden death [Fatal]
  - Neoplasm progression [Fatal]
  - Malignant neoplasm progression [Fatal]
  - Depressed level of consciousness [Fatal]
  - Hypoglycaemia [Fatal]
  - Glucose tolerance impaired [Fatal]
  - Cachexia [Fatal]
  - Atrial fibrillation [Fatal]
  - Blood pressure immeasurable [Fatal]
  - Hyperhidrosis [Fatal]
  - Peripheral coldness [Fatal]
  - Constipation [Unknown]
  - Aspartate aminotransferase increased [Unknown]
